FAERS Safety Report 26037457 (Version 2)
Quarter: 2025Q4

REPORT INFORMATION
  Report Type: Spontaneous
  Country: US (occurrence: US)
  Receive Date: 20251112
  Receipt Date: 20251114
  Transmission Date: 20260118
  Serious: No
  Sender: NOVARTIS
  Company Number: US-002147023-NVSC2025US173846

PATIENT

DRUGS (1)
  1. RHAPSIDO [Suspect]
     Active Substance: REMIBRUTINIB
     Indication: Product used for unknown indication
     Dosage: 25 MG, BID
     Route: 048

REACTIONS (2)
  - Chronic spontaneous urticaria [Unknown]
  - Wrong technique in product usage process [Unknown]
